FAERS Safety Report 21656893 (Version 1)
Quarter: 2022Q4

REPORT INFORMATION
  Report Type: Spontaneous
  Country: US (occurrence: US)
  Receive Date: 20221129
  Receipt Date: 20221129
  Transmission Date: 20230112
  Serious: No
  Sender: FDA-Public Use
  Company Number: US-SANOFI-01383260

PATIENT
  Sex: Female

DRUGS (3)
  1. TOUJEO [Suspect]
     Active Substance: INSULIN GLARGINE
     Indication: Diabetes mellitus
     Dosage: 22 UNITS IN THE MORNING AND THEN 17 UNITS AT NIGHT, BID
  2. TOUJEO [Suspect]
     Active Substance: INSULIN GLARGINE
     Dosage: 22 IU, QD
  3. OZEMPIC [Concomitant]
     Active Substance: SEMAGLUTIDE

REACTIONS (1)
  - Inappropriate schedule of product administration [Unknown]
